FAERS Safety Report 18004515 (Version 2)
Quarter: 2020Q3

REPORT INFORMATION
  Report Type: Spontaneous
  Country: IT (occurrence: IT)
  Receive Date: 20200709
  Receipt Date: 20200721
  Transmission Date: 20201103
  Serious: Yes (Hospitalization, Other)
  Sender: FDA-Public Use
  Company Number: NVSC2020IT161521

PATIENT
  Age: 64 Year
  Sex: Male
  Weight: 78 kg

DRUGS (13)
  1. OXALIPLATIN. [Suspect]
     Active Substance: OXALIPLATIN
     Indication: COLON CANCER
     Dosage: UNK, CYCLIC
     Route: 041
     Dates: start: 20160104
  2. ONDANSETRON [Concomitant]
     Active Substance: ONDANSETRON
     Indication: COLON CANCER
     Dosage: 8 MG, UNK
     Route: 042
  3. OXALIPLATIN. [Suspect]
     Active Substance: OXALIPLATIN
     Indication: COLORECTAL CANCER
     Dosage: XELOX ADJUVANT CHEMOTHERAPY
     Route: 065
  4. OXALIPLATIN. [Suspect]
     Active Substance: OXALIPLATIN
     Indication: COLORECTAL CANCER STAGE III
     Dosage: 250 MG, CYCLIC
     Route: 041
     Dates: start: 20160215, end: 20160215
  5. CAPECITABINE. [Suspect]
     Active Substance: CAPECITABINE
     Indication: COLON CANCER
     Dosage: XELOX ADJUVANT CHEMOTHERAPY
     Route: 048
  6. CAPECITABINE. [Suspect]
     Active Substance: CAPECITABINE
     Indication: COLORECTAL CANCER STAGE III
     Dosage: UNK, CYCLIC
     Route: 041
     Dates: start: 20160104
  7. DEXAMETHASONE. [Concomitant]
     Active Substance: DEXAMETHASONE
     Dosage: 8 MG
     Route: 065
     Dates: start: 20160215, end: 20160215
  8. DEXAMETHASONE. [Concomitant]
     Active Substance: DEXAMETHASONE
     Indication: COLON CANCER
     Dosage: 8 MG, UNK
     Route: 042
  9. ONDANSETRON [Concomitant]
     Active Substance: ONDANSETRON
     Dosage: 8 MG (DURATION: 10 MINUTES)
     Route: 041
     Dates: start: 20160215, end: 20160215
  10. GLUCOSE [Suspect]
     Active Substance: DEXTROSE
     Indication: COLORECTAL CANCER STAGE III
     Dosage: 100 ML, WITH DRUGS INFUSED
     Route: 041
     Dates: start: 20160215
  11. GLUCOSE [Suspect]
     Active Substance: DEXTROSE
     Dosage: WASH
     Route: 065
     Dates: start: 20160215, end: 20160215
  12. GLUCOSE [Suspect]
     Active Substance: DEXTROSE
     Dosage: 500 ML, CYCLIC (WITH PREVIOUS CYCLES OF XELOX)
     Route: 041
     Dates: start: 20160104
  13. GLUCOSE [Suspect]
     Active Substance: DEXTROSE
     Dosage: 500 ML, CYCLIC (WITH OXALIPLATIN 250 MG)
     Route: 041
     Dates: start: 20160215, end: 20160215

REACTIONS (5)
  - Peripheral motor neuropathy [Recovered/Resolved]
  - Diarrhoea [Recovered/Resolved]
  - Hypokalaemia [Recovered/Resolved]
  - Neurotoxicity [Unknown]
  - Peripheral sensory neuropathy [Unknown]
